FAERS Safety Report 9196238 (Version 1)
Quarter: 2013Q1

REPORT INFORMATION
  Report Type: Spontaneous
  Country: US (occurrence: None)
  Receive Date: 20120709
  Receipt Date: 20120709
  Transmission Date: 20140127
  Serious: No
  Sender: FDA-Public Use
  Company Number: 2012HGS-003662

PATIENT
  Age: 31 Year
  Sex: Female
  Weight: 56.25 kg

DRUGS (11)
  1. BENLYSTA [Suspect]
     Indication: SYSTEMIC LUPUS ERYTHEMATOSUS
     Dosage: 1 IN 28 D, INTRAVENOUS DRIP
     Route: 042
     Dates: start: 20120511
  2. CELEBREX (CELECOXIB) (CELECOXIB) [Concomitant]
  3. CYMBALTA  (DULOXETINE HYDROCHLORIDE) (DULOXETINE HYDROCHLORIDE) [Concomitant]
  4. FLEXERIL (CYCLOBENZAPRINE HYDROCHLORIDE) CYCLOBENZAPRINE HYDROCHLORIDE) [Concomitant]
  5. SYNTHROID (LEVOTHYROXINE SODIUM) (LEVOTHYROXINE SODIUM) [Concomitant]
  6. LISINOPRIL (LISINOPRIL DIHYDRATE)) (LISINOPRIL DIHYDRATE) [Concomitant]
  7. PLAQUENIL (HYDROXYCHLOROQUINE SULFATE) (HYDROXYCHLOROQUINE SULATE) [Concomitant]
  8. PREDNISONE (PREDNISONE) (PREDNISONE) [Concomitant]
  9. TRAMADOL (TRAMADOL) (TRAMADOL) [Concomitant]
  10. ZANTAC (RANITIDINE HYDROCHLORIDE) (RANITIDINE HYDROCHLORIDE) [Concomitant]
  11. AMBIEN (ZOLPIDEM TARTRATE) (ZOL PIDEM TARTRATE) [Concomitant]

REACTIONS (4)
  - Headache [None]
  - Pruritus [None]
  - Nausea [None]
  - Metrorrhagia [None]
